FAERS Safety Report 6721279-7 (Version None)
Quarter: 2010Q2

REPORT INFORMATION
  Report Type: 
  Country: None (occurrence: None)
  Receive Date: 20100512
  Receipt Date: 20100506
  Transmission Date: 20101027
  Serious: Yes (Death)
  Sender: FDA-Public Use
  Company Number: US-MYLANLABS-2010S1002767

PATIENT
  Age: 66 Year
  Sex: Male

DRUGS (6)
  1. FENTANYL CITRATE [Suspect]
     Indication: PAIN
     Dosage: CHANGED Q72H
     Route: 062
     Dates: start: 20100116
  2. OXYCONTIN [Concomitant]
  3. LACTULOSE [Concomitant]
  4. ALDACTONE [Concomitant]
  5. FUROSEMIDE [Concomitant]
  6. PROTONIX [Concomitant]

REACTIONS (2)
  - HEPATIC CIRRHOSIS [None]
  - RECTAL HAEMORRHAGE [None]
